FAERS Safety Report 6216690-7 (Version None)
Quarter: 2009Q2

REPORT INFORMATION
  Report Type: 
  Country: None (occurrence: None)
  Receive Date: 20090605
  Receipt Date: 20090528
  Transmission Date: 20091009
  Serious: Yes (Other)
  Sender: FDA-Public Use
  Company Number: GB-ABBOTT-09P-167-0563301-00

PATIENT
  Sex: Male
  Weight: 106 kg

DRUGS (1)
  1. HUMIRA [Suspect]
     Indication: PSORIASIS
     Route: 058
     Dates: start: 20090219, end: 20090317

REACTIONS (7)
  - BURNING SENSATION [None]
  - ERYTHEMA [None]
  - EYE SWELLING [None]
  - ORAL CANDIDIASIS [None]
  - PAIN OF SKIN [None]
  - RASH [None]
  - SWELLING FACE [None]
